FAERS Safety Report 6093077-1 (Version None)
Quarter: 2009Q1

REPORT INFORMATION
  Report Type: 
  Country: None (occurrence: None)
  Receive Date: 20090226
  Receipt Date: 20080910
  Transmission Date: 20090719
  Serious: Yes (Hospitalization, Other)
  Sender: FDA-Public Use
  Company Number: CZ-RANBAXY-2008US-22038

PATIENT

DRUGS (2)
  1. ISOPTIN SR [Suspect]
     Indication: DRUG USE FOR UNKNOWN INDICATION
     Dosage: UNK
     Route: 065
  2. DIGOXIN [Concomitant]
     Indication: DRUG USE FOR UNKNOWN INDICATION
     Route: 065

REACTIONS (3)
  - BRONCHOPNEUMONIA [None]
  - DRUG TOXICITY [None]
  - RENAL FAILURE ACUTE [None]
